FAERS Safety Report 5227767-7 (Version None)
Quarter: 2007Q1

REPORT INFORMATION
  Report Type: 
  Country: None (occurrence: None)
  Receive Date: 20070202
  Receipt Date: 20070126
  Transmission Date: 20070707
  Serious: Yes (Hospitalization)
  Sender: FDA-Public Use
  Company Number: GB-PFIZER INC-2007007528

PATIENT
  Age: 60 Year
  Sex: Male

DRUGS (3)
  1. LIPITOR [Suspect]
     Indication: BLOOD CHOLESTEROL INCREASED
     Route: 048
  2. PREDNISOLONE [Concomitant]
  3. ANTIBIOTICS [Concomitant]

REACTIONS (2)
  - INFLUENZA [None]
  - PALPITATIONS [None]
